FAERS Safety Report 10150044 (Version 2)
Quarter: 2014Q2

REPORT INFORMATION
  Report Type: Spontaneous
  Country: BR (occurrence: BR)
  Receive Date: 20140502
  Receipt Date: 20140527
  Transmission Date: 20141212
  Serious: Yes (Other)
  Sender: FDA-Public Use
  Company Number: BR-PFIZER INC-2014117369

PATIENT
  Age: 83 Year
  Sex: Male
  Weight: 75 kg

DRUGS (3)
  1. LIPITOR [Suspect]
     Dosage: 10 MG, UNK
     Route: 048
     Dates: start: 2008
  2. LIPITOR [Suspect]
     Dosage: UNK
     Dates: start: 1994
  3. SEROQUEL XR [Concomitant]
     Dosage: 250 MG (5 TABLETS), 3X/DAY
     Dates: start: 201310

REACTIONS (4)
  - Cerebral ischaemia [Unknown]
  - Depression [Unknown]
  - Lip and/or oral cavity cancer [Unknown]
  - Speech disorder [Unknown]
